FAERS Safety Report 24993759 (Version 4)
Quarter: 2025Q1

REPORT INFORMATION
  Report Type: Spontaneous
  Country: US (occurrence: US)
  Receive Date: 20250221
  Receipt Date: 20250320
  Transmission Date: 20250408
  Serious: No
  Sender: VIIV
  Company Number: US-ViiV Healthcare-121835

PATIENT
  Sex: Male

DRUGS (1)
  1. TRIUMEQ [Suspect]
     Active Substance: ABACAVIR SULFATE\DOLUTEGRAVIR SODIUM\LAMIVUDINE
     Indication: HIV infection
     Route: 048
     Dates: start: 2010

REACTIONS (2)
  - Gynaecomastia [Not Recovered/Not Resolved]
  - Deformity [Not Recovered/Not Resolved]
